FAERS Safety Report 9786064 (Version 2)
Quarter: 2014Q2

REPORT INFORMATION
  Report Type: Spontaneous
  Country: US (occurrence: US)
  Receive Date: 20131227
  Receipt Date: 20140404
  Transmission Date: 20141212
  Serious: Yes (Other)
  Sender: FDA-Public Use
  Company Number: US-BAYER-2013-157452

PATIENT
  Sex: Female

DRUGS (1)
  1. MIRENA [Suspect]
     Indication: CONTRACEPTION
     Dosage: 20 MCG/24HR, HS
     Route: 015
     Dates: start: 20101207

REACTIONS (5)
  - Uterine perforation [None]
  - Device issue [None]
  - Pain [None]
  - Emotional distress [None]
  - Injury [None]
